FAERS Safety Report 9680142 (Version 1)
Quarter: 2013Q4

REPORT INFORMATION
  Report Type: Spontaneous
  Country: BE (occurrence: BE)
  Receive Date: 20131111
  Receipt Date: 20131111
  Transmission Date: 20140711
  Serious: Yes (Other)
  Sender: FDA-Public Use
  Company Number: BE-AMGEN-BELSP2013078394

PATIENT
  Sex: 0

DRUGS (4)
  1. VECTIBIX [Suspect]
     Indication: PRODUCT USED FOR UNKNOWN INDICATION
     Dosage: UNK
     Route: 065
  2. FOLINIC ACID [Concomitant]
     Dosage: UNK
  3. FLUOROURACIL [Concomitant]
     Dosage: UNK
  4. OXALIPLATIN [Concomitant]
     Dosage: UNK

REACTIONS (4)
  - Metastases to liver [Unknown]
  - Skin reaction [Recovering/Resolving]
  - Swelling face [Recovering/Resolving]
  - Rash pustular [Recovering/Resolving]
